FAERS Safety Report 6327545-1 (Version None)
Quarter: 2009Q3

REPORT INFORMATION
  Report Type: 
  Country: None (occurrence: None)
  Receive Date: 20090825
  Receipt Date: 20090817
  Transmission Date: 20100115
  Serious: Yes (Hospitalization)
  Sender: FDA-Public Use
  Company Number: TR-ELI_LILLY_AND_COMPANY-TR200908000885

PATIENT
  Age: 56 Year
  Sex: Male

DRUGS (2)
  1. HUMALOG [Suspect]
     Indication: DIABETES MELLITUS
     Dosage: 12 IU, 3/D
     Route: 058
     Dates: start: 20070801
  2. LEVEMIR [Concomitant]
     Indication: DIABETES MELLITUS
     Dosage: 14 IU, DAILY (1/D)
     Route: 058

REACTIONS (1)
  - DIABETIC VASCULAR DISORDER [None]
